FAERS Safety Report 11322332 (Version 2)
Quarter: 2015Q3

REPORT INFORMATION
  Report Type: Spontaneous
  Country: IT (occurrence: None)
  Receive Date: 20150728
  Receipt Date: 20150805
  Transmission Date: 20151125
  Serious: Yes (Hospitalization)
  Sender: FDA-Public Use
  Company Number: NL01PV15_39365

PATIENT
  Age: 90 Year
  Sex: Female

DRUGS (10)
  1. PERINDOPRIL/INDAPAMIDE (INDAPAMIDE, PERINDOPRIL ERBUMINE) [Suspect]
     Active Substance: INDAPAMIDE\PERINDOPRIL
     Indication: HYPERTENSION
     Route: 048
     Dates: start: 20140101, end: 20150201
  2. GAVISCON (ALGINIC ACID, ALUMINIUM HYDROXIDE GEL, DRIED, MAGNESIUM TRISILICATE SODIUM ALGINATE SODIUM BICARBONATE) [Concomitant]
  3. PLAVIX [Concomitant]
     Active Substance: CLOPIDOGREL BISULFATE
  4. ANTRA (OMEPRAZOLE) [Concomitant]
     Active Substance: OMEPRAZOLE
  5. SERTRALINE (SERTRALINE) TABLET [Suspect]
     Active Substance: SERTRALINE HYDROCHLORIDE
     Indication: DEPRESSION
     Route: 048
     Dates: start: 20140101, end: 20150201
  6. NITRO-DUR (GLYCERYL TRINITRATE) [Concomitant]
     Active Substance: NITROGLYCERIN
  7. TAVOR [Concomitant]
     Active Substance: LORAZEPAM
  8. METFORMIN [Concomitant]
     Active Substance: METFORMIN HYDROCHLORIDE
  9. ZOLPIDEM [Suspect]
     Active Substance: ZOLPIDEM\ZOLPIDEM TARTRATE
     Indication: INSOMNIA
     Route: 048
     Dates: start: 20140101, end: 20150201
  10. UNKNOWN (BISOPROLOL) [Concomitant]

REACTIONS (4)
  - Fall [None]
  - Drop attacks [None]
  - Hyponatraemia [None]
  - Psychomotor retardation [None]

NARRATIVE: CASE EVENT DATE: 20150128
